FAERS Safety Report 8803563 (Version 2)
Quarter: 2013Q1

REPORT INFORMATION
  Report Type: Spontaneous
  Country: US (occurrence: US)
  Receive Date: 20120924
  Receipt Date: 20130116
  Transmission Date: 20140127
  Serious: No
  Sender: FDA-Public Use
  Company Number: US-009507513-1209USA008664

PATIENT
  Age: 29 Year
  Sex: Female
  Weight: 111.11 kg

DRUGS (1)
  1. NEXPLANON [Suspect]
     Indication: CONTRACEPTION
     Dosage: 1 DF, UNK
     Dates: start: 20120824, end: 20120910

REACTIONS (3)
  - Infection [Recovering/Resolving]
  - Implant site dermatitis [Recovering/Resolving]
  - Pruritus [Recovering/Resolving]
